FAERS Safety Report 16730544 (Version 2)
Quarter: 2019Q3

REPORT INFORMATION
  Report Type: Spontaneous
  Country: US (occurrence: US)
  Receive Date: 20190822
  Receipt Date: 20190910
  Transmission Date: 20191005
  Serious: Yes (Hospitalization)
  Sender: FDA-Public Use
  Company Number: US-VERTEX PHARMACEUTICALS-2019-007702

PATIENT
  Age: 23 Year
  Sex: Male

DRUGS (5)
  1. STERILE WATER [Concomitant]
     Active Substance: WATER
  2. COLISTIMETHATE [COLISTIMETHATE SODIUM] [Concomitant]
     Active Substance: COLISTIMETHATE SODIUM
  3. SYMDEKO [Suspect]
     Active Substance: IVACAFTOR\TEZACAFTOR
     Indication: CYSTIC FIBROSIS
     Dosage: TEZACFTOR 100 MG, IVACAFTOR 150 MG QAM; IVACAFTOR 150 MG QPM WITH FAT-CONTAINING FOODS
     Route: 048
     Dates: start: 201803, end: 20190809
  4. TOBI PODHALER [Concomitant]
     Active Substance: TOBRAMYCIN
  5. SODIUM CHLORIDE. [Concomitant]
     Active Substance: SODIUM CHLORIDE

REACTIONS (1)
  - Lung transplant [Not Recovered/Not Resolved]

NARRATIVE: CASE EVENT DATE: 20190805
